FAERS Safety Report 8281055-3 (Version None)
Quarter: 2012Q2

REPORT INFORMATION
  Report Type: 
  Country: None (occurrence: None)
  Receive Date: 20120412
  Receipt Date: 20120330
  Transmission Date: 20120825
  Serious: Yes (Other)
  Sender: FDA-Public Use
  Company Number: DK-MYLANLABS-2012S1006913

PATIENT
  Age: 30 Year
  Sex: Female

DRUGS (7)
  1. LAMOTRGINE [Suspect]
     Indication: BIPOLAR I DISORDER
     Dates: start: 20100930
  2. LAMOTRGINE [Suspect]
     Dates: start: 20120210
  3. LAMOTRGINE [Suspect]
  4. LAMOTRGINE [Suspect]
     Dates: start: 20111101
  5. CHLORZOXAZONE [Concomitant]
     Indication: PRODUCT USED FOR UNKNOWN INDICATION
     Dates: start: 20120105
  6. TRAMADOL HCL [Concomitant]
     Indication: PRODUCT USED FOR UNKNOWN INDICATION
     Dosage: 50MG THREE TIMES PER DAY
  7. IMOVANE [Concomitant]
     Indication: PRODUCT USED FOR UNKNOWN INDICATION

REACTIONS (1)
  - HAEMORRHAGIC DISORDER [None]
